FAERS Safety Report 5594299-6 (Version None)
Quarter: 2008Q1

REPORT INFORMATION
  Report Type: 
  Country: None (occurrence: None)
  Receive Date: 20080117
  Receipt Date: 20080109
  Transmission Date: 20080703
  Serious: Yes (Other)
  Sender: FDA-Public Use
  Company Number: PHRM2008FR00556

PATIENT
  Age: 60 Year
  Sex: Male

DRUGS (6)
  1. VOLTAREN [Suspect]
     Dosage: UNK, PRN
     Route: 065
     Dates: start: 20070521, end: 20070621
  2. BREXIN [Suspect]
     Dosage: UNK, UNK
     Route: 048
     Dates: start: 20070525, end: 20070621
  3. ESCITALOPRAM [Concomitant]
     Dates: start: 20070525
  4. HYZAAR [Concomitant]
     Dates: end: 20070705
  5. CHONDROSULF [Concomitant]
     Dates: start: 20070525
  6. FLECTOR [Concomitant]
     Route: 061

REACTIONS (4)
  - ACTIVITIES OF DAILY LIVING IMPAIRED [None]
  - DYSPNOEA [None]
  - HYPERTENSIVE CRISIS [None]
  - OEDEMA PERIPHERAL [None]
